FAERS Safety Report 15654123 (Version 1)
Quarter: 2018Q4

REPORT INFORMATION
  Report Type: Spontaneous
  Country: US (occurrence: US)
  Receive Date: 20181125
  Receipt Date: 20181125
  Transmission Date: 20190205
  Serious: Yes (Other)
  Sender: FDA-Public Use
  Company Number: None

PATIENT
  Age: 99 Year
  Sex: Female
  Weight: 56.25 kg

DRUGS (3)
  1. CLINDAMYCIN 300MG CAPSULE [Suspect]
     Active Substance: CLINDAMYCIN
     Indication: ANIMAL SCRATCH
     Dosage: ?          QUANTITY:1 CAPSULE(S);?
     Route: 048
     Dates: start: 20181119, end: 20181119
  2. ATORVASTATIN [Concomitant]
     Active Substance: ATORVASTATIN
  3. GLIMEPIRIDE. [Concomitant]
     Active Substance: GLIMEPIRIDE

REACTIONS (1)
  - Oesophageal pain [None]

NARRATIVE: CASE EVENT DATE: 20181120
